FAERS Safety Report 23332118 (Version 6)
Quarter: 2024Q1

REPORT INFORMATION
  Report Type: Spontaneous
  Country: FR (occurrence: FR)
  Receive Date: 20231222
  Receipt Date: 20240223
  Transmission Date: 20240410
  Serious: No
  Sender: FDA-Public Use
  Company Number: FR-JNJFOC-20231205189

PATIENT
  Age: 44 Year
  Sex: Male

DRUGS (4)
  1. SIMPONI [Suspect]
     Active Substance: GOLIMUMAB
     Indication: Rheumatoid arthritis
     Dosage: STRENGTH: 50.00 MG / 0.50 ML
     Route: 058
     Dates: start: 20160504
  2. SIMPONI [Suspect]
     Active Substance: GOLIMUMAB
     Dosage: USE FROM JAN 2015 TO OCT 2016 THEN SINCE NOV 2023
     Route: 058
     Dates: start: 201501
  3. SIMPONI [Suspect]
     Active Substance: GOLIMUMAB
     Indication: Rheumatoid arthritis
     Dosage: STRENGTH: 50.00 MG / 0.50 ML
     Route: 058
     Dates: start: 20160504
  4. SIMPONI [Suspect]
     Active Substance: GOLIMUMAB

REACTIONS (5)
  - Device issue [Unknown]
  - Device occlusion [Unknown]
  - Product dose omission issue [Unknown]
  - Device defective [Unknown]
  - Inappropriate schedule of product administration [Unknown]

NARRATIVE: CASE EVENT DATE: 20231129
